FAERS Safety Report 7521546-3 (Version None)
Quarter: 2011Q2

REPORT INFORMATION
  Report Type: 
  Country: None (occurrence: None)
  Receive Date: 20110603
  Receipt Date: 20110524
  Transmission Date: 20111010
  Serious: Yes (Other)
  Sender: FDA-Public Use
  Company Number: US-BAYER-2011-011330

PATIENT
  Age: 32 Year
  Sex: Female
  Weight: 70 kg

DRUGS (1)
  1. MIRENA [Suspect]
     Indication: CONTRACEPTION
     Dosage: 20 ?G, CONT
     Route: 015
     Dates: start: 20101129, end: 20110202

REACTIONS (15)
  - DYSGEUSIA [None]
  - PREGNANCY WITH CONTRACEPTIVE DEVICE [None]
  - FEELING ABNORMAL [None]
  - ABORTION SPONTANEOUS [None]
  - ABDOMINAL PAIN LOWER [None]
  - WEIGHT INCREASED [None]
  - OEDEMA PERIPHERAL [None]
  - BREAST SWELLING [None]
  - BREAST TENDERNESS [None]
  - ABDOMINAL DISTENSION [None]
  - SWELLING FACE [None]
  - MIGRAINE [None]
  - DEPRESSION [None]
  - MOOD SWINGS [None]
  - OVARIAN CYST [None]
